FAERS Safety Report 8335508-X (Version None)
Quarter: 2012Q2

REPORT INFORMATION
  Report Type: 
  Country: None (occurrence: None)
  Receive Date: 20120503
  Receipt Date: 20120426
  Transmission Date: 20120825
  Serious: Yes (Hospitalization, Other)
  Sender: FDA-Public Use
  Company Number: US-TEVA-335173USA

PATIENT
  Age: 67 Year
  Sex: Female
  Weight: 84.5 kg

DRUGS (3)
  1. BORTEZOMIB [Suspect]
     Indication: LYMPHOMA
     Route: 042
     Dates: start: 20110712, end: 20110715
  2. TREANDA [Suspect]
     Indication: LYMPHOMA
     Route: 042
     Dates: start: 20110712, end: 20110715
  3. RITUXIMAB [Suspect]
     Indication: LYMPHOMA
     Route: 042
     Dates: start: 20110712, end: 20110712

REACTIONS (4)
  - CYSTITIS [None]
  - LIPASE INCREASED [None]
  - CLOSTRIDIAL INFECTION [None]
  - SMALL INTESTINAL OBSTRUCTION [None]
